FAERS Safety Report 16078815 (Version 1)
Quarter: 2019Q1

REPORT INFORMATION
  Report Type: Spontaneous
  Country: US (occurrence: US)
  Receive Date: 20190315
  Receipt Date: 20190315
  Transmission Date: 20190418
  Serious: No
  Sender: FDA-Public Use
  Company Number: US-PERRIGO-18US005604

PATIENT
  Age: 47 Year
  Sex: Female
  Weight: 77.1 kg

DRUGS (15)
  1. SCOPOLAMINE [Suspect]
     Active Substance: SCOPOLAMINE
     Indication: VERTIGO
     Dosage: 1 MG, OVER 3 DAYS
     Route: 062
     Dates: start: 20180512, end: 20180515
  2. SCOPOLAMINE [Suspect]
     Active Substance: SCOPOLAMINE
     Dosage: 1 MG, OVER 3 DAYS
     Route: 062
     Dates: start: 20180515, end: 20180519
  3. PREDNISONE. [Concomitant]
     Active Substance: PREDNISONE
     Indication: RASH
     Dosage: UNK
     Route: 048
     Dates: start: 20180512
  4. TRIAMTERENE AND HYDROCHLOROTHIAZIDE [Concomitant]
     Active Substance: HYDROCHLOROTHIAZIDE\TRIAMTERENE
     Indication: POSTURAL ORTHOSTATIC TACHYCARDIA SYNDROME
     Dosage: UNK
     Route: 048
     Dates: start: 2018
  5. CANNABIDIOL [Concomitant]
     Active Substance: CANNABIDIOL
     Indication: SEIZURE
     Dosage: UNKNOWN, PRN
     Route: 048
     Dates: start: 201804
  6. CANNABIDIOL [Concomitant]
     Active Substance: CANNABIDIOL
     Dosage: 75 MG, UNKNOWN
     Route: 048
     Dates: start: 2018, end: 201805
  7. TRAZODONE [Concomitant]
     Active Substance: TRAZODONE HYDROCHLORIDE
     Indication: SLEEP DISORDER
     Dosage: UNK
     Route: 048
     Dates: start: 201805
  8. LEVOTHYROXINE. [Concomitant]
     Active Substance: LEVOTHYROXINE
     Indication: HYPOTHYROIDISM
     Dosage: UNK
     Route: 048
  9. TIZANIDINE. [Concomitant]
     Active Substance: TIZANIDINE
     Indication: MUSCLE SPASMS
     Dosage: UNKNOWN, PRN
     Route: 048
     Dates: start: 201709
  10. TRIAMTERENE AND HYDROCHLOROTHIAZIDE [Concomitant]
     Active Substance: HYDROCHLOROTHIAZIDE\TRIAMTERENE
     Indication: FLUID RETENTION
  11. CANNABIDIOL [Concomitant]
     Active Substance: CANNABIDIOL
     Dosage: 50 MG, UNKNOWN
     Route: 048
     Dates: start: 201802, end: 2018
  12. CANNABIDIOL [Concomitant]
     Active Substance: CANNABIDIOL
     Dosage: 100 MG, UNKNOWN
     Route: 048
     Dates: start: 201805
  13. ADVIL [Concomitant]
     Active Substance: IBUPROFEN
     Indication: MIGRAINE
     Dosage: UNK
     Route: 048
  14. TRIAMTERENE AND HYDROCHLOROTHIAZIDE [Concomitant]
     Active Substance: HYDROCHLOROTHIAZIDE\TRIAMTERENE
     Indication: MIGRAINE
  15. CANNABIDIOL [Concomitant]
     Active Substance: CANNABIDIOL
     Dosage: UNKNOWN, UNKNOWN
     Route: 048
     Dates: start: 201804

REACTIONS (8)
  - Tremor [Recovering/Resolving]
  - Dysphemia [Recovering/Resolving]
  - Incorrect product administration duration [Recovered/Resolved]
  - Off label use [Recovered/Resolved]
  - Seizure [Recovered/Resolved]
  - Muscle twitching [Recovering/Resolving]
  - Muscle spasms [Recovering/Resolving]
  - Vision blurred [Recovering/Resolving]

NARRATIVE: CASE EVENT DATE: 201805
